FAERS Safety Report 15895843 (Version 3)
Quarter: 2019Q2

REPORT INFORMATION
  Report Type: Spontaneous
  Country: US (occurrence: US)
  Receive Date: 20190131
  Receipt Date: 20190516
  Transmission Date: 20190711
  Serious: Yes (Other)
  Sender: FDA-Public Use
  Company Number: US-PFIZER INC-2019044547

PATIENT
  Age: 46 Year
  Sex: Female

DRUGS (1)
  1. XELJANZ [Suspect]
     Active Substance: TOFACITINIB CITRATE
     Dosage: 5 MG, UNK

REACTIONS (7)
  - Sjogren^s syndrome [Unknown]
  - Product dose omission [Unknown]
  - Systemic lupus erythematosus [Unknown]
  - Mouth ulceration [Unknown]
  - Peripheral swelling [Unknown]
  - Nasopharyngitis [Recovering/Resolving]
  - Joint swelling [Unknown]
